FAERS Safety Report 4867147-7 (Version None)
Quarter: 2005Q4

REPORT INFORMATION
  Report Type: 
  Country: None (occurrence: None)
  Receive Date: 20051222
  Receipt Date: 20051207
  Transmission Date: 20060501
  Serious: Yes (Other)
  Sender: FDA-Public Use
  Company Number: US200512001118

PATIENT
  Age: 60 Year
  Sex: Male

DRUGS (7)
  1. ALIMTA [Suspect]
     Indication: LUNG CANCER METASTATIC
     Dosage: INTRAVENOUS
     Route: 042
     Dates: start: 20051103
  2. VITAMIN B12 (CYANOCOBALAM) [Concomitant]
  3. FOLIC ACID (FOLIC ACID WITH VITAMINS-MINERALS UNKNOWN FORMULATION) [Concomitant]
  4. DILANTIN [Concomitant]
  5. DECADRON SRC [Concomitant]
  6. LOVENOX [Concomitant]
  7. KEPPRA     /USA/(LEVETIRACETAM) [Concomitant]

REACTIONS (4)
  - ALOPECIA [None]
  - BLOOD PRESSURE DECREASED [None]
  - FATIGUE [None]
  - HEART RATE IRREGULAR [None]
